FAERS Safety Report 19276823 (Version 3)
Quarter: 2021Q4

REPORT INFORMATION
  Report Type: Report from Study
  Country: PE (occurrence: PE)
  Receive Date: 20210519
  Receipt Date: 20211116
  Transmission Date: 20220303
  Serious: Yes (Hospitalization)
  Sender: FDA-Public Use
  Company Number: PE-TAKEDA-2021TUS012188

PATIENT
  Age: 43 Year
  Sex: Female

DRUGS (2)
  1. BRENTUXIMAB VEDOTIN [Suspect]
     Active Substance: BRENTUXIMAB VEDOTIN
     Indication: Hodgkin^s disease
     Dosage: 100 MILLIGRAM, Q3WEEKS
     Route: 042
     Dates: start: 20210105
  2. EFAC [Concomitant]
     Dosage: UNK

REACTIONS (11)
  - COVID-19 [Unknown]
  - Pyrexia [Not Recovered/Not Resolved]
  - Arthralgia [Unknown]
  - Dyspepsia [Recovered/Resolved]
  - Axillary mass [Unknown]
  - Peripheral swelling [Recovered/Resolved]
  - Decreased appetite [Unknown]
  - Drug ineffective [Unknown]
  - Decreased immune responsiveness [Unknown]
  - Product dose omission issue [Unknown]
  - Off label use [Unknown]

NARRATIVE: CASE EVENT DATE: 20210218
